FAERS Safety Report 23542314 (Version 2)
Quarter: 2024Q4

REPORT INFORMATION
  Report Type: Report from Study
  Country: CL (occurrence: CL)
  Receive Date: 20240220
  Receipt Date: 20241111
  Transmission Date: 20250115
  Serious: Yes (Hospitalization, Other)
  Sender: JOHNSON AND JOHNSON
  Company Number: CL-JNJFOC-20231281401

PATIENT
  Age: 68 Year
  Sex: Male

DRUGS (2)
  1. SIMPONI [Suspect]
     Active Substance: GOLIMUMAB
     Indication: Rheumatoid arthritis
     Dosage: LAST DRUG APPLICATION : 22-NOV-2023
     Route: 058
     Dates: start: 20220307
  2. SIMPONI [Suspect]
     Active Substance: GOLIMUMAB
     Dosage: LAST DRUG APPLICATION: 22-OCT-2024
     Route: 058
     Dates: start: 20220307

REACTIONS (3)
  - Inguinal hernia [Unknown]
  - Dental prosthesis placement [Recovered/Resolved]
  - Nasopharyngitis [Unknown]
